FAERS Safety Report 9830143 (Version 7)
Quarter: 2015Q2

REPORT INFORMATION
  Report Type: Report from Study
  Country: US (occurrence: US)
  Receive Date: 20140120
  Receipt Date: 20150528
  Transmission Date: 20150821
  Serious: Yes (Other)
  Sender: FDA-Public Use
  Company Number: US-SA-2013SA121967

PATIENT
  Age: 43 Year
  Sex: Female

DRUGS (3)
  1. AUBAGIO [Suspect]
     Active Substance: TERIFLUNOMIDE
     Indication: MULTIPLE SCLEROSIS
     Dosage: STARTIND DATE: MARCH (UNSPECIFIED YEAR)
     Route: 048
     Dates: start: 20131115
  2. AUBAGIO [Suspect]
     Active Substance: TERIFLUNOMIDE
     Indication: MULTIPLE SCLEROSIS
     Dosage: STARTIND DATE: MARCH (UNSPECIFIED YEAR)
     Route: 048
  3. VITAMIN D [Concomitant]
     Active Substance: CHOLECALCIFEROL

REACTIONS (15)
  - Weight decreased [Recovering/Resolving]
  - Drug dose omission [Unknown]
  - Asthenia [Unknown]
  - Hypoaesthesia [Unknown]
  - Headache [Not Recovered/Not Resolved]
  - Infection [Recovering/Resolving]
  - Alopecia [Unknown]
  - Sleep apnoea syndrome [Not Recovered/Not Resolved]
  - Insomnia [Not Recovered/Not Resolved]
  - Miliaria [Recovering/Resolving]
  - Type 2 diabetes mellitus [Unknown]
  - Stress [Recovering/Resolving]
  - Paraesthesia [Unknown]
  - Nephrolithiasis [Recovering/Resolving]
  - Multiple sclerosis relapse [Recovering/Resolving]

NARRATIVE: CASE EVENT DATE: 201403
